FAERS Safety Report 18283834 (Version 1)
Quarter: 2020Q3

REPORT INFORMATION
  Report Type: Spontaneous
  Country: AU (occurrence: AU)
  Receive Date: 20200918
  Receipt Date: 20200918
  Transmission Date: 20201103
  Serious: Yes (Hospitalization, Other)
  Sender: FDA-Public Use
  Company Number: AU-SAMSUNG BIOEPIS-SB-2020-28599

PATIENT
  Sex: Male

DRUGS (8)
  1. METHOTREXATE. [Suspect]
     Active Substance: METHOTREXATE
     Indication: PRODUCT USED FOR UNKNOWN INDICATION
     Dosage: UNKNOWN
     Route: 065
  2. TOCILIZUMAB. [Suspect]
     Active Substance: TOCILIZUMAB
     Indication: POLYARTERITIS NODOSA
     Route: 042
  3. CYCLOPHOSPHAMIDE. [Suspect]
     Active Substance: CYCLOPHOSPHAMIDE
     Indication: PRODUCT USED FOR UNKNOWN INDICATION
     Dosage: UNKNOWN
     Route: 065
  4. ANAKINRA [Suspect]
     Active Substance: ANAKINRA
     Indication: PRODUCT USED FOR UNKNOWN INDICATION
     Dosage: UNKNOWN
     Route: 065
  5. AZATHIOPRINE. [Suspect]
     Active Substance: AZATHIOPRINE
     Indication: PRODUCT USED FOR UNKNOWN INDICATION
     Dosage: UNKNOWN
     Route: 065
  6. HUMIRA [Suspect]
     Active Substance: ADALIMUMAB
     Indication: PRODUCT USED FOR UNKNOWN INDICATION
     Dosage: UNKNOWN
     Route: 065
  7. INFLIXIMAB [Suspect]
     Active Substance: INFLIXIMAB
     Indication: PRODUCT USED FOR UNKNOWN INDICATION
     Dosage: UNKNOWN
     Route: 065
  8. PREDNISOLONE. [Suspect]
     Active Substance: PREDNISOLONE
     Indication: POLYARTERITIS NODOSA
     Dosage: UNKNOWN
     Route: 065

REACTIONS (9)
  - Polyarteritis nodosa [Unknown]
  - Systemic inflammatory response syndrome [Unknown]
  - Injection site hypersensitivity [Unknown]
  - Multiple-drug resistance [Unknown]
  - Off label use [Unknown]
  - Toxicity to various agents [Unknown]
  - Condition aggravated [Unknown]
  - Drug ineffective [Unknown]
  - Therapeutic product effect incomplete [Unknown]
